FAERS Safety Report 7071184-4 (Version None)
Quarter: 2010Q4

REPORT INFORMATION
  Report Type: 
  Country: None (occurrence: None)
  Receive Date: 20101029
  Receipt Date: 20101018
  Transmission Date: 20110411
  Serious: Yes (Hospitalization)
  Sender: FDA-Public Use
  Company Number: RU-CELGENEUS-251-21880-10101725

PATIENT
  Age: 54 Year
  Sex: Female

DRUGS (4)
  1. REVLIMID [Suspect]
     Indication: MULTIPLE MYELOMA
     Route: 048
  2. REVLIMID [Suspect]
     Route: 048
     Dates: start: 20101006, end: 20101015
  3. DEXAMETHASONE [Concomitant]
     Indication: MULTIPLE MYELOMA
     Route: 048
  4. DEXAMETHASONE [Concomitant]
     Route: 048
     Dates: start: 20101006, end: 20101009

REACTIONS (8)
  - ANGIOEDEMA [None]
  - ASTHENIA [None]
  - DYSPHONIA [None]
  - HYPERTHERMIA [None]
  - NAUSEA [None]
  - OEDEMA PERIPHERAL [None]
  - TREMOR [None]
  - URTICARIA [None]
